FAERS Safety Report 18098617 (Version 2)
Quarter: 2021Q3

REPORT INFORMATION
  Report Type: Spontaneous
  Country: US (occurrence: US)
  Receive Date: 20200731
  Receipt Date: 20210719
  Transmission Date: 20211014
  Serious: No
  Sender: FDA-Public Use
  Company Number: US-STRIDES ARCOLAB LIMITED-2020SP000723

PATIENT
  Sex: Female

DRUGS (11)
  1. TACROLIMUS. [Suspect]
     Active Substance: TACROLIMUS
     Indication: RENAL AND LIVER TRANSPLANT
     Dosage: 3 MILLIGRAM, BID IN 0 TO 2 TRIMESTERS
     Route: 065
     Dates: start: 20070817
  2. AMLODIPINE [Suspect]
     Active Substance: AMLODIPINE BESYLATE
     Indication: HYPERTENSION
  3. PREDNISOLONE. [Suspect]
     Active Substance: PREDNISOLONE
     Indication: RENAL AND LIVER TRANSPLANT
     Dosage: 10 MILLIGRAM, QOD
     Route: 065
     Dates: start: 20070817
  4. TACROLIMUS. [Suspect]
     Active Substance: TACROLIMUS
     Dosage: 4 MILLIGRAM, BID IN THIRD TRIMESTER
     Route: 065
  5. FERROUS GLUCONATE [Suspect]
     Active Substance: FERROUS GLUCONATE
     Indication: PRODUCT USED FOR UNKNOWN INDICATION
     Dosage: UNK, DAILY
     Route: 065
  6. ACYCLOVIR                          /00587301/ [Suspect]
     Active Substance: ACYCLOVIR
     Indication: RENAL AND LIVER TRANSPLANT
     Dosage: UNK
     Route: 065
     Dates: start: 2019
  7. MYCOPHENOLATE MOFETIL. [Suspect]
     Active Substance: MYCOPHENOLATE MOFETIL
     Indication: RENAL AND LIVER TRANSPLANT
     Dosage: 750 MILLIGRAM, BID
     Route: 048
     Dates: start: 20070817, end: 20200105
  8. AZATHIOPRINE. [Suspect]
     Active Substance: AZATHIOPRINE
     Indication: RENAL AND LIVER TRANSPLANT
     Dosage: 75 MILLIGRAM DAILY
     Route: 065
     Dates: start: 20200107
  9. LANSOPRAZOLE. [Suspect]
     Active Substance: LANSOPRAZOLE
     Indication: GASTROOESOPHAGEAL REFLUX DISEASE
     Dosage: 20 MILLIGRAM DAILY (MONDAY TO FRIDAY)
     Route: 065
  10. VALACYCLOVIR                       /01269701/ [Suspect]
     Active Substance: VALACYCLOVIR HYDROCHLORIDE
     Indication: HERPES SIMPLEX
     Dosage: 500 MILLIGRAM DAILY
     Route: 065
     Dates: start: 2019
  11. AMLODIPINE [Suspect]
     Active Substance: AMLODIPINE BESYLATE
     Indication: RENAL AND LIVER TRANSPLANT
     Dosage: 2.5 MILLIGRAM DAILY
     Route: 065
     Dates: start: 20070817

REACTIONS (1)
  - Maternal exposure during pregnancy [Unknown]
